FAERS Safety Report 6252078-0 (Version None)
Quarter: 2009Q2

REPORT INFORMATION
  Report Type: 
  Country: None (occurrence: None)
  Receive Date: 20090630
  Receipt Date: 20060227
  Transmission Date: 20091009
  Serious: Yes (Hospitalization)
  Sender: FDA-Public Use
  Company Number: US-ROCHE-638783

PATIENT
  Sex: Male

DRUGS (4)
  1. ENFUVIRTIDE [Suspect]
     Route: 065
     Dates: start: 20060123, end: 20080814
  2. NORVIR [Concomitant]
     Indication: ANTIRETROVIRAL THERAPY
     Dates: start: 20060123, end: 20080814
  3. PREZISTA [Concomitant]
     Indication: ANTIRETROVIRAL THERAPY
     Dates: start: 20060123, end: 20080814
  4. BACTRIM [Concomitant]
     Indication: ANTIBIOTIC THERAPY
     Dates: end: 20080814

REACTIONS (1)
  - ARTERIAL HAEMORRHAGE [None]
